FAERS Safety Report 25740259 (Version 1)
Quarter: 2025Q3

REPORT INFORMATION
  Report Type: Report from Study
  Country: US (occurrence: US)
  Receive Date: 20250829
  Receipt Date: 20250829
  Transmission Date: 20251020
  Serious: Yes (Other)
  Sender: ALEXION PHARMACEUTICALS
  Company Number: A202311009

PATIENT
  Age: 70 Year
  Sex: Female

DRUGS (1)
  1. STRENSIQ [Suspect]
     Active Substance: ASFOTASE ALFA
     Indication: Phosphorus metabolism disorder
     Dosage: 2 MILLIGRAM/KILOGRAM, TIW
     Route: 065

REACTIONS (15)
  - Deafness [Unknown]
  - Vitamin B6 increased [Unknown]
  - Beta globulin decreased [Unknown]
  - Vitamin D increased [Unknown]
  - Thyroxine decreased [Unknown]
  - Arthropathy [Unknown]
  - Muscle discomfort [Unknown]
  - Arthralgia [Unknown]
  - Ear pain [Unknown]
  - Neck pain [Unknown]
  - Myalgia [Unknown]
  - Peripheral swelling [Unknown]
  - Musculoskeletal discomfort [Unknown]
  - Drug ineffective [Unknown]
  - Vision blurred [Unknown]

NARRATIVE: CASE EVENT DATE: 20250417
